FAERS Safety Report 10910663 (Version 1)
Quarter: 2015Q1

REPORT INFORMATION
  Report Type: Spontaneous
  Country: US (occurrence: US)
  Receive Date: 20150312
  Receipt Date: 20150312
  Transmission Date: 20150721
  Serious: No
  Sender: FDA-Public Use
  Company Number: US-ABBVIE-14P-163-1245483-00

PATIENT
  Sex: Male

DRUGS (3)
  1. DEPAKOTE ER [Suspect]
     Active Substance: DIVALPROEX SODIUM
     Indication: PRODUCT USED FOR UNKNOWN INDICATION
  2. FELBAMATE. [Suspect]
     Active Substance: FELBAMATE
     Indication: PRODUCT USED FOR UNKNOWN INDICATION
  3. ONFI [Suspect]
     Active Substance: CLOBAZAM
     Indication: EPILEPSY
     Dates: start: 20120820

REACTIONS (1)
  - Somnolence [Not Recovered/Not Resolved]
